FAERS Safety Report 9387027 (Version 1)
Quarter: 2013Q3

REPORT INFORMATION
  Report Type: Spontaneous
  Country: DE (occurrence: None)
  Receive Date: 20130702
  Receipt Date: 20130702
  Transmission Date: 20140515
  Serious: Yes (Other)
  Sender: FDA-Public Use
  Company Number: AUR-APL-2013-05389

PATIENT
  Age: 70 Year
  Sex: Male
  Weight: 78 kg

DRUGS (5)
  1. SIMVASTATIN (SIMVASTATIN) [Suspect]
     Indication: HYPERCHOLESTEROLAEMIA
     Route: 048
     Dates: start: 2012, end: 20130325
  2. AMANTADINE (AMANTADINE) [Concomitant]
  3. RALNEA (ROPINIROLE HYDROCHLORIDE) [Concomitant]
  4. DOPADURA C (SINEMET) [Concomitant]
  5. TASMAR (TOLCAPONE) [Concomitant]

REACTIONS (3)
  - Myopathy [None]
  - Paraparesis [None]
  - Blood creatine phosphokinase increased [None]
